FAERS Safety Report 7472030-7 (Version None)
Quarter: 2011Q2

REPORT INFORMATION
  Report Type: 
  Country: None (occurrence: None)
  Receive Date: 20110511
  Receipt Date: 20101020
  Transmission Date: 20111010
  Serious: No
  Sender: FDA-Public Use
  Company Number: A0887865A

PATIENT

DRUGS (4)
  1. UNKNOWN [Concomitant]
  2. TYKERB [Suspect]
     Indication: BREAST CANCER
  3. XELODA [Suspect]
  4. HERCEPTIN [Suspect]

REACTIONS (1)
  - RASH [None]
